FAERS Safety Report 6121485-9 (Version None)
Quarter: 2009Q1

REPORT INFORMATION
  Report Type: 
  Country: None (occurrence: None)
  Receive Date: 20090317
  Receipt Date: 20090313
  Transmission Date: 20090719
  Serious: Yes (Death)
  Sender: FDA-Public Use
  Company Number: JP-ASTRAZENECA-2009AP01074

PATIENT
  Age: 77 Year
  Sex: Male

DRUGS (10)
  1. ZOLADEX [Suspect]
     Indication: PROSTATE CANCER
     Route: 058
     Dates: start: 20070726, end: 20080605
  2. CASODEX [Suspect]
     Indication: PROSTATE CANCER
     Route: 048
     Dates: start: 20070628, end: 20070726
  3. CASODEX [Suspect]
     Route: 048
     Dates: start: 20080408
  4. BEZAFIBRATE [Concomitant]
     Dosage: DOSE UNKNOWN
     Route: 048
  5. AMLODIPINE [Concomitant]
     Dosage: DOSE UNKNOWN
     Route: 048
  6. NICHI E NATE [Concomitant]
     Dosage: DOSE UNKNOWN
     Route: 048
  7. FLUITRAN [Concomitant]
     Dosage: DOSE UNKNOWN
     Route: 048
  8. RENIVEZE [Concomitant]
     Dosage: DOSE UNKNOWN
     Route: 048
  9. OMERAP [Concomitant]
     Dosage: DOSE UNKNOWN
     Route: 048
  10. LEUPROLIDE ACETATE [Concomitant]
     Indication: PROSTATE CANCER
     Route: 058
     Dates: start: 20080605

REACTIONS (1)
  - MULTI-ORGAN DISORDER [None]
